FAERS Safety Report 5430338-0 (Version None)
Quarter: 2007Q3

REPORT INFORMATION
  Report Type: 
  Country: None (occurrence: None)
  Receive Date: 20070830
  Receipt Date: 20070827
  Transmission Date: 20080115
  Serious: Yes (Death)
  Sender: FDA-Public Use
  Company Number: PHEH2007US01332

PATIENT
  Age: 14 Year
  Sex: Female
  Weight: 83.9 kg

DRUGS (4)
  1. KEPPRA [Suspect]
     Indication: CONVULSION
     Dosage: 250 MG, BID
     Route: 048
     Dates: start: 20061128, end: 20061205
  2. KEPPRA [Suspect]
     Dosage: 500 MG, BID
     Route: 048
     Dates: start: 20061205, end: 20070104
  3. TRILEPTAL [Suspect]
     Indication: CONVULSION
     Dosage: 600 MG, TID
     Dates: start: 20051111, end: 20070104
  4. WELLBUTRIN XL [Concomitant]

REACTIONS (7)
  - BONE FRAGMENTATION [None]
  - COMPLETED SUICIDE [None]
  - GUN SHOT WOUND [None]
  - HEAD INJURY [None]
  - SKIN LACERATION [None]
  - SUBARACHNOID HAEMORRHAGE [None]
  - SUBDURAL HAEMORRHAGE [None]
